FAERS Safety Report 9143487 (Version 1)
Quarter: 2013Q1

REPORT INFORMATION
  Report Type: Spontaneous
  Country: US (occurrence: US)
  Receive Date: 20130306
  Receipt Date: 20130306
  Transmission Date: 20140127
  Serious: No
  Sender: FDA-Public Use
  Company Number: US-PFIZER INC-2013074714

PATIENT
  Age: 29 Year
  Sex: Female

DRUGS (1)
  1. DEPO-PROVERA [Suspect]
     Indication: CONTRACEPTION
     Dosage: 400 MG, RECEIVED ONCE
     Dates: start: 201211

REACTIONS (3)
  - Drug prescribing error [Unknown]
  - Incorrect dose administered [Unknown]
  - Injection site discomfort [Unknown]
